FAERS Safety Report 7199161-3 (Version None)
Quarter: 2010Q4

REPORT INFORMATION
  Report Type: 
  Country: None (occurrence: None)
  Receive Date: 20101223
  Receipt Date: 20101223
  Transmission Date: 20110411
  Serious: Yes (Death, Hospitalization)
  Sender: FDA-Public Use
  Company Number: None

PATIENT
  Sex: Male
  Weight: 61.81 kg

DRUGS (2)
  1. CARBOPLATIN [Suspect]
     Dosage: 790 MG
     Dates: end: 20101109
  2. TAXOL [Suspect]
     Dosage: 346 MG
     Dates: end: 20101109

REACTIONS (3)
  - GENERAL PHYSICAL HEALTH DETERIORATION [None]
  - METASTATIC NEOPLASM [None]
  - PNEUMONIA [None]
